FAERS Safety Report 25765459 (Version 1)
Quarter: 2025Q3

REPORT INFORMATION
  Report Type: Spontaneous
  Country: US (occurrence: US)
  Receive Date: 20250905
  Receipt Date: 20250905
  Transmission Date: 20251020
  Serious: Yes (Life-Threatening, Hospitalization)
  Sender: MYLAN
  Company Number: US-MYLANLABS-2025M1074513

PATIENT
  Age: 6 Day
  Sex: Male

DRUGS (2)
  1. ESMOLOL HYDROCHLORIDE [Suspect]
     Active Substance: ESMOLOL HYDROCHLORIDE
     Indication: Accelerated idioventricular rhythm
     Dosage: 25 MICROGRAM/KILOGRAM, QMINUTE
  2. ESMOLOL HYDROCHLORIDE [Suspect]
     Active Substance: ESMOLOL HYDROCHLORIDE
     Dosage: 50 MICROGRAM/KILOGRAM, QMINUTE

REACTIONS (3)
  - Treatment failure [Unknown]
  - Hypotension [Unknown]
  - Off label use [Unknown]
